FAERS Safety Report 12675943 (Version 1)
Quarter: 2016Q3

REPORT INFORMATION
  Report Type: Spontaneous
  Country: US (occurrence: None)
  Receive Date: 20160822
  Receipt Date: 20160822
  Transmission Date: 20161109
  Serious: No
  Sender: FDA-Public Use
  Company Number: None

PATIENT
  Age: 60 Year
  Sex: Male
  Weight: 87.54 kg

DRUGS (15)
  1. SAVELLA [Suspect]
     Active Substance: MILNACIPRAN HYDROCHLORIDE
     Indication: FIBROMYALGIA
     Route: 048
     Dates: start: 20100615, end: 20160715
  2. MS CONTIN [Concomitant]
     Active Substance: MORPHINE SULFATE
  3. TESTOSTERONE INJECTION [Concomitant]
  4. PRAVASTATIN. [Concomitant]
     Active Substance: PRAVASTATIN
  5. BACLOFEN. [Concomitant]
     Active Substance: BACLOFEN
  6. MULTIVITAMIN/MINERAL SUPPLEMENT [Concomitant]
  7. BOSTON SCIENTIFIC SPINAL CORD STIMULATOR IMPLANT [Concomitant]
  8. BABY ASPIRIN [Concomitant]
     Active Substance: ASPIRIN
  9. LANSOPRAZOLE. [Concomitant]
     Active Substance: LANSOPRAZOLE
  10. LATANOPROST. [Concomitant]
     Active Substance: LATANOPROST
  11. CIALIS [Concomitant]
     Active Substance: TADALAFIL
  12. TRAZODONE [Concomitant]
     Active Substance: TRAZODONE HYDROCHLORIDE
  13. CLONAZEPAM. [Concomitant]
     Active Substance: CLONAZEPAM
  14. PERCOCET [Concomitant]
     Active Substance: ACETAMINOPHEN\OXYCODONE HYDROCHLORIDE
  15. LOSARTAN. [Concomitant]
     Active Substance: LOSARTAN

REACTIONS (9)
  - Hypertension [None]
  - Migraine [None]
  - Anxiety [None]
  - Urethral pain [None]
  - Flushing [None]
  - Painful ejaculation [None]
  - Fibromyalgia [None]
  - Disease recurrence [None]
  - Erythema [None]

NARRATIVE: CASE EVENT DATE: 20151015
